FAERS Safety Report 8390395-9 (Version None)
Quarter: 2012Q2

REPORT INFORMATION
  Report Type: 
  Country: None (occurrence: None)
  Receive Date: 20120529
  Receipt Date: 20120516
  Transmission Date: 20120825
  Serious: Yes (Other)
  Sender: FDA-Public Use
  Company Number: CA-JNJFOC-20120514356

PATIENT
  Sex: Female
  Weight: 79.5 kg

DRUGS (7)
  1. REMICADE [Suspect]
     Indication: RHEUMATOID ARTHRITIS
     Route: 042
     Dates: start: 20060101
  2. ACCOLATE [Concomitant]
     Indication: PREMEDICATION
     Route: 065
     Dates: start: 20070101
  3. CALCIUM AND VITAMIN D [Concomitant]
     Indication: OSTEOPOROSIS
     Dosage: SINCE 20 YEARS OLD
     Route: 065
  4. METHOTREXATE [Concomitant]
     Route: 065
     Dates: start: 20060101
  5. ACCOLATE [Concomitant]
     Indication: ASTHMA
     Route: 065
     Dates: start: 20070101
  6. OXYCONTIN [Concomitant]
     Dosage: SINCE 20 YEARS OLD
     Route: 065
     Dates: start: 20080101
  7. PREDNISONE TAB [Suspect]
     Indication: PRODUCT USED FOR UNKNOWN INDICATION
     Route: 065
     Dates: start: 20060101

REACTIONS (2)
  - BACK INJURY [None]
  - RIB FRACTURE [None]
